FAERS Safety Report 22614422 (Version 4)
Quarter: 2023Q4

REPORT INFORMATION
  Report Type: Spontaneous
  Country: US (occurrence: US)
  Receive Date: 20230619
  Receipt Date: 20231227
  Transmission Date: 20240110
  Serious: Yes (Other)
  Sender: FDA-Public Use
  Company Number: US-BRISTOL-MYERS SQUIBB COMPANY-2023-085524

PATIENT
  Age: 70 Year
  Sex: Female
  Weight: 129.2 kg

DRUGS (6)
  1. REVLIMID [Suspect]
     Active Substance: LENALIDOMIDE
     Indication: Plasma cell myeloma
     Route: 048
     Dates: start: 20230601
  2. REVLIMID [Suspect]
     Active Substance: LENALIDOMIDE
     Route: 048
  3. REVLIMID [Suspect]
     Active Substance: LENALIDOMIDE
     Dosage: FREQUENCY: 3 WEEKS ON, 1 OFF
     Route: 048
     Dates: end: 20231214
  4. LOSARTAN [Concomitant]
     Active Substance: LOSARTAN
     Indication: Product used for unknown indication
  5. COREG [Concomitant]
     Active Substance: CARVEDILOL
     Indication: Product used for unknown indication
  6. VELCADE [Concomitant]
     Active Substance: BORTEZOMIB
     Indication: Product used for unknown indication
     Dosage: LOW DOSE

REACTIONS (8)
  - Fungal infection [Recovering/Resolving]
  - Pancreatitis [Recovered/Resolved]
  - Off label use [Unknown]
  - Renal impairment [Not Recovered/Not Resolved]
  - Vomiting [Unknown]
  - Diarrhoea [Unknown]
  - Neuropathy peripheral [Unknown]
  - Pruritus allergic [Recovered/Resolved]

NARRATIVE: CASE EVENT DATE: 20231213
